FAERS Safety Report 20146129 (Version 1)
Quarter: 2021Q4

REPORT INFORMATION
  Report Type: Spontaneous
  Country: US (occurrence: None)
  Receive Date: 20211203
  Receipt Date: 20211203
  Transmission Date: 20220303
  Serious: Yes (Hospitalization)
  Sender: FDA-Public Use
  Company Number: None

PATIENT
  Age: 9 Year
  Sex: Male

DRUGS (9)
  1. CREON [Suspect]
     Active Substance: PANCRELIPASE AMYLASE\PANCRELIPASE LIPASE\PANCRELIPASE PROTEASE
     Indication: Cystic fibrosis
     Dosage: DOSE OR AMOUNT: 12000-38000 UNIT, 5 CAPSULES
     Route: 048
     Dates: start: 20150930
  2. ALBUTEROL SULFATE [Concomitant]
     Active Substance: ALBUTEROL SULFATE
  3. BUBBLES THE FISH II PEDIA [Concomitant]
  4. CETIRIZINE [Concomitant]
     Active Substance: CETIRIZINE HYDROCHLORIDE
  5. PARI ERAPID [Concomitant]
  6. PARI LC PLUS [Concomitant]
  7. VITAMINS [Concomitant]
     Active Substance: VITAMINS
  8. SODIUM CHLORIDE [Concomitant]
     Active Substance: SODIUM CHLORIDE
  9. NEBULIZER HAN [Concomitant]

REACTIONS (2)
  - Pneumonia [None]
  - Infective pulmonary exacerbation of cystic fibrosis [None]

NARRATIVE: CASE EVENT DATE: 20211128
